FAERS Safety Report 5274038-9 (Version None)
Quarter: 2007Q1

REPORT INFORMATION
  Report Type: 
  Country: None (occurrence: None)
  Receive Date: 20070323
  Receipt Date: 20070319
  Transmission Date: 20070707
  Serious: Yes (Death, Other)
  Sender: FDA-Public Use
  Company Number: BR-BRISTOL-MYERS SQUIBB COMPANY-13721881

PATIENT
  Age: 43 Year
  Sex: Male

DRUGS (4)
  1. REYATAZ [Suspect]
     Indication: HIV INFECTION
     Route: 048
  2. LAMIVUDINE [Concomitant]
     Indication: HIV INFECTION
     Route: 048
  3. ZIDOVUDINE [Concomitant]
     Indication: HIV INFECTION
     Route: 048
  4. CRIXIVAN [Concomitant]
     Indication: HIV INFECTION
     Route: 048

REACTIONS (4)
  - DEATH [None]
  - PANCREATIC PSEUDOCYST [None]
  - PANCREATITIS [None]
  - PANCREATITIS HAEMORRHAGIC [None]
